FAERS Safety Report 6399696-7 (Version None)
Quarter: 2009Q4

REPORT INFORMATION
  Report Type: 
  Country: None (occurrence: None)
  Receive Date: 20091014
  Receipt Date: 20091005
  Transmission Date: 20100525
  Serious: Yes (Other)
  Sender: FDA-Public Use
  Company Number: FR-JNJFOC-20091001584

PATIENT
  Age: 26 Year
  Sex: Male

DRUGS (12)
  1. TOPIRAMATE [Suspect]
     Route: 048
  2. TOPIRAMATE [Suspect]
     Route: 048
  3. TOPIRAMATE [Suspect]
     Indication: EPILEPSY
     Route: 048
  4. CARBAMAZEPINE [Suspect]
     Route: 048
  5. CARBAMAZEPINE [Suspect]
     Route: 048
  6. CARBAMAZEPINE [Suspect]
     Indication: EPILEPSY
     Route: 048
  7. TIAGABINE HCL [Suspect]
     Route: 048
  8. TIAGABINE HCL [Suspect]
     Route: 048
  9. TIAGABINE HCL [Suspect]
     Indication: EPILEPSY
     Route: 048
  10. CLOBAZAM [Suspect]
     Route: 048
  11. CLOBAZAM [Suspect]
     Route: 048
  12. CLOBAZAM [Suspect]
     Indication: EPILEPSY
     Route: 048

REACTIONS (9)
  - AGGRESSION [None]
  - AGITATION [None]
  - CONFUSIONAL STATE [None]
  - CONVULSION [None]
  - DELIRIUM [None]
  - HALLUCINATION [None]
  - PERSECUTORY DELUSION [None]
  - PSYCHOTIC DISORDER [None]
  - REFUSAL OF TREATMENT BY PATIENT [None]
